FAERS Safety Report 11720697 (Version 1)
Quarter: 2015Q4

REPORT INFORMATION
  Report Type: Spontaneous
  Country: DE (occurrence: DE)
  Receive Date: 20151110
  Receipt Date: 20151110
  Transmission Date: 20160304
  Serious: Yes (Other)
  Sender: FDA-Public Use
  Company Number: DE-TAKEDA-2015TUS015524

PATIENT
  Age: 78 Year
  Sex: Female
  Weight: 85 kg

DRUGS (6)
  1. FALITHROM [Interacting]
     Active Substance: PHENPROCOUMON
     Indication: VENTRICULAR FIBRILLATION
  2. VALSARTAN. [Concomitant]
     Active Substance: VALSARTAN
     Indication: CARDIAC DISORDER
     Dosage: UNK
     Route: 048
  3. BISOPROLOL [Concomitant]
     Active Substance: BISOPROLOL
     Indication: HYPERTENSION
     Dosage: UNK
     Route: 048
  4. BRINTELLIX [Suspect]
     Active Substance: VORTIOXETINE HYDROBROMIDE
     Indication: DEPRESSION
     Dosage: UNK
     Route: 048
     Dates: start: 20150920, end: 20151012
  5. PANTOPREM [Concomitant]
     Indication: GASTRITIS
     Dosage: UNK
     Route: 048
  6. FALITHROM [Interacting]
     Active Substance: PHENPROCOUMON
     Indication: ARRHYTHMIA
     Dosage: UNK
     Route: 048
     Dates: start: 20150919, end: 20151012

REACTIONS (4)
  - Haemorrhagic diathesis [Recovered/Resolved]
  - Prothrombin time prolonged [Recovered/Resolved]
  - Drug interaction [Recovered/Resolved]
  - International normalised ratio increased [Recovered/Resolved]

NARRATIVE: CASE EVENT DATE: 20151011
